FAERS Safety Report 4477358-0 (Version None)
Quarter: 2004Q4

REPORT INFORMATION
  Report Type: 
  Country: None (occurrence: None)
  Receive Date: 20041018
  Receipt Date: 20041007
  Transmission Date: 20050328
  Serious: Yes (Hospitalization)
  Sender: FDA-Public Use
  Company Number: BE-JNJFOC-20040807875

PATIENT
  Age: 78 Year
  Sex: Female

DRUGS (10)
  1. PREPULSID [Suspect]
     Indication: DIABETIC GASTROPARESIS
     Route: 049
     Dates: start: 20030224
  2. DURAGESIC [Concomitant]
     Route: 062
  3. MIXTARD 30 [Concomitant]
  4. MIXTARD 30 [Concomitant]
     Dosage: 8 UNITS
  5. MIXTARD HUMAN 70/30 [Concomitant]
  6. MIXTARD HUMAN 70/30 [Concomitant]
     Dosage: 26 UNITS
  7. ZESTRIL [Concomitant]
  8. FENOFIBRATE [Concomitant]
  9. TEMESTA [Concomitant]
  10. BETAHISTINE [Concomitant]

REACTIONS (1)
  - CHOLELITHIASIS [None]
